FAERS Safety Report 4860391-4 (Version None)
Quarter: 2005Q4

REPORT INFORMATION
  Report Type: 
  Country: None (occurrence: None)
  Receive Date: 20051219
  Receipt Date: 20051209
  Transmission Date: 20060501
  Serious: Yes (Other)
  Sender: FDA-Public Use
  Company Number: CA-BRISTOL-MYERS SQUIBB COMPANY-13219159

PATIENT
  Age: 77 Year
  Sex: Male

DRUGS (12)
  1. TEQUIN [Suspect]
  2. ALLOPURINOL [Concomitant]
  3. AMARYL [Concomitant]
  4. ATACAND [Concomitant]
  5. CLONIDINE [Concomitant]
  6. COUMADIN [Concomitant]
  7. FLOVENT [Concomitant]
  8. INSULIN [Concomitant]
  9. LASIX [Concomitant]
  10. LIPITOR [Concomitant]
  11. PREVACID [Concomitant]
  12. QUININE [Concomitant]

REACTIONS (4)
  - HYPERGLYCAEMIA [None]
  - HYPERHIDROSIS [None]
  - HYPOGLYCAEMIA [None]
  - TREMOR [None]
